FAERS Safety Report 21539796 (Version 1)
Quarter: 2022Q4

REPORT INFORMATION
  Report Type: Spontaneous
  Country: US (occurrence: US)
  Receive Date: 20221102
  Receipt Date: 20221102
  Transmission Date: 20230113
  Serious: No
  Sender: FDA-Public Use
  Company Number: US-Ipsen Biopharmaceuticals, Inc.-2022-29209

PATIENT
  Age: 45 Year
  Sex: Female

DRUGS (1)
  1. DYSPORT [Suspect]
     Active Substance: ABOBOTULINUMTOXINA
     Indication: Skin wrinkling
     Dosage: 50 UNITS: GLABELLA
     Route: 065
     Dates: start: 20221020, end: 20221020

REACTIONS (4)
  - Drug ineffective [Unknown]
  - Product use issue [Unknown]
  - Product preparation error [Unknown]
  - Product storage error [Unknown]

NARRATIVE: CASE EVENT DATE: 20221020
